FAERS Safety Report 13245336 (Version 1)
Quarter: 2017Q1

REPORT INFORMATION
  Report Type: Spontaneous
  Country: US (occurrence: US)
  Receive Date: 20170217
  Receipt Date: 20170217
  Transmission Date: 20170428
  Serious: No
  Sender: FDA-Public Use
  Company Number: US-ASTRAZENECA-2017SE16037

PATIENT
  Sex: Male

DRUGS (2)
  1. MOVANTIK [Suspect]
     Active Substance: NALOXEGOL OXALATE
     Route: 048
  2. LOTREL [Concomitant]
     Active Substance: AMLODIPINE BESYLATE\BENAZEPRIL HYDROCHLORIDE
     Dosage: UNKNOWN
     Route: 065

REACTIONS (5)
  - Hypertension [Unknown]
  - Echocardiogram abnormal [Unknown]
  - Spinal cord injury cervical [Unknown]
  - Hypotension [Unknown]
  - Renal impairment [Unknown]
